FAERS Safety Report 7197740-0 (Version None)
Quarter: 2010Q4

REPORT INFORMATION
  Report Type: 
  Country: None (occurrence: None)
  Receive Date: 20101213
  Receipt Date: 20101205
  Transmission Date: 20110411
  Serious: Yes (Death, Other)
  Sender: FDA-Public Use
  Company Number: 2010US004960

PATIENT
  Age: 3 Year
  Sex: Male

DRUGS (4)
  1. PROGRAF [Suspect]
     Indication: RENAL AND LIVER TRANSPLANT
  2. METHYLPREDNISOLONE [Concomitant]
  3. PREDNISONE TAB [Concomitant]
  4. DACLIZUMAB (DACLIZUMAB) [Concomitant]

REACTIONS (4)
  - FUNGAL SEPSIS [None]
  - PULMONARY SEPSIS [None]
  - RENAL FAILURE [None]
  - SURGICAL PROCEDURE REPEATED [None]
